FAERS Safety Report 19267988 (Version 2)
Quarter: 2021Q2

REPORT INFORMATION
  Report Type: Spontaneous
  Country: JP (occurrence: JP)
  Receive Date: 20210518
  Receipt Date: 20210616
  Transmission Date: 20210717
  Serious: Yes (Other)
  Sender: FDA-Public Use
  Company Number: PHJP2018JP013604

PATIENT
  Age: 2 Month

DRUGS (2)
  1. AFINITOR [Suspect]
     Active Substance: EVEROLIMUS
     Indication: ASTROCYTOMA, LOW GRADE
     Dosage: 0.83 MG
     Route: 048
  2. AFINITOR [Suspect]
     Active Substance: EVEROLIMUS
     Indication: TUBEROUS SCLEROSIS COMPLEX
     Dosage: 1.25 MG
     Route: 048

REACTIONS (8)
  - Tuberous sclerosis complex associated neuropsychiatric disease [Unknown]
  - Product use issue [Unknown]
  - Astrocytoma, low grade [Unknown]
  - Neoplasm progression [Unknown]
  - Partial seizures [Unknown]
  - Pneumonia [Recovered/Resolved]
  - Stomatitis [Unknown]
  - Hamartoma [Unknown]
